FAERS Safety Report 8598731-5 (Version None)
Quarter: 2012Q3

REPORT INFORMATION
  Report Type: 
  Country: None (occurrence: None)
  Receive Date: 20120816
  Receipt Date: 20120807
  Transmission Date: 20120928
  Serious: Yes (Other)
  Sender: FDA-Public Use
  Company Number: JP-ASTRAZENECA-2012SE56935

PATIENT
  Age: 79 Year

DRUGS (2)
  1. SEROQUEL [Suspect]
     Route: 050
  2. GRAMALIL [Suspect]
     Route: 050

REACTIONS (2)
  - INTENTIONAL DRUG MISUSE [None]
  - APLASIA PURE RED CELL [None]
